FAERS Safety Report 4628653-3 (Version None)
Quarter: 2005Q2

REPORT INFORMATION
  Report Type: 
  Country: None (occurrence: None)
  Receive Date: 20050404
  Receipt Date: 20050318
  Transmission Date: 20051028
  Serious: Yes (Hospitalization)
  Sender: FDA-Public Use
  Company Number: WAES 0503USAO3318

PATIENT
  Age: 74 Year
  Sex: Male
  Weight: 55.7924 kg

DRUGS (4)
  1. VIOXX [Suspect]
     Indication: BACK PAIN
     Dosage: 25 MG/DAILY/PO
     Route: 048
     Dates: start: 20030424, end: 20030502
  2. INFUSION (FORM) CISPLATIN 60 MG/M[2] [Suspect]
     Indication: SMALL CELL LUNG CANCER STAGE UNSPECIFIED
     Dosage: 60 MG/M[2]/Q3W/IV
     Route: 042
     Dates: start: 20030115
  3. INFUSION (FORM) ETOPOSIDE 120 MG/M[2] [Suspect]
     Indication: SMALL CELL LUNG CANCER STAGE UNSPECIFIED
     Dosage: 120 MG/M[2]/IV
     Route: 042
     Dates: start: 20030115
  4. LANOXI [Concomitant]

REACTIONS (4)
  - CARDIAC FAILURE CONGESTIVE [None]
  - HYPOXIA [None]
  - PLEURAL EFFUSION [None]
  - PNEUMONIA [None]
